FAERS Safety Report 10646616 (Version 2)
Quarter: 2014Q4

REPORT INFORMATION
  Report Type: Spontaneous
  Country: US (occurrence: US)
  Receive Date: 20141211
  Receipt Date: 20141217
  Transmission Date: 20150529
  Serious: No
  Sender: FDA-Public Use
  Company Number: US-PFIZER INC-2014340955

PATIENT
  Age: 64 Year
  Sex: Male
  Weight: 87.75 kg

DRUGS (2)
  1. LYRICA [Suspect]
     Active Substance: PREGABALIN
     Indication: IRRITABLE BOWEL SYNDROME
     Dosage: 75 MG, 2X/DAY
     Dates: start: 20141122
  2. PRIMIDONE. [Concomitant]
     Active Substance: PRIMIDONE
     Indication: TREMOR
     Dosage: UNK

REACTIONS (3)
  - Euphoric mood [Unknown]
  - Product use issue [Unknown]
  - Insomnia [Unknown]
